FAERS Safety Report 6137661-5 (Version None)
Quarter: 2009Q1

REPORT INFORMATION
  Report Type: 
  Country: None (occurrence: None)
  Receive Date: 20090327
  Receipt Date: 20090318
  Transmission Date: 20090719
  Serious: Yes (Hospitalization, Other)
  Sender: FDA-Public Use
  Company Number: WAES 0704USA04204

PATIENT
  Age: 57 Year
  Sex: Male
  Weight: 68.9467 kg

DRUGS (13)
  1. ZETIA [Suspect]
     Indication: BLOOD CHOLESTEROL
     Dosage: 10 MG/ DAILY/ PO
     Route: 048
  2. CIPRO [Suspect]
     Indication: PROPHYLAXIS
     Dosage: 250 MG/ DAILY
  3. ASPIRIN [Suspect]
     Indication: PROPHYLAXIS
     Dosage: 81 MG/ DAILY/ PO
     Route: 048
     Dates: start: 19860101, end: 20030810
  4. IRINOTECAN HCL [Suspect]
     Indication: PROPHYLAXIS
     Dosage: 125 MG/M[2]/ DAILY/ IV
     Route: 042
     Dates: start: 20030811, end: 20030811
  5. IRINOTECAN HCL [Suspect]
     Indication: PROPHYLAXIS
     Dosage: 125 MG/M[2]/ DAILY/ IV
     Route: 042
     Dates: start: 20030818, end: 20030818
  6. FLUOROURACIL [Suspect]
     Indication: COLORECTAL CANCER METASTATIC
     Dosage: 500 MG/M[2]/ DAILY/ IV
     Route: 042
     Dates: start: 20030811, end: 20030811
  7. FLUOROURACIL [Suspect]
     Indication: COLORECTAL CANCER METASTATIC
     Dosage: 500 MG/M[2]/ DAILY/ IV
     Route: 042
     Dates: start: 20030818, end: 20030818
  8. XANAX [Suspect]
     Indication: SLEEP DISORDER
     Dosage: 0.5 MG/ QHS/ PO
     Route: 048
  9. LEUCOVORIN CALCIUM [Suspect]
     Indication: COLORECTAL CANCER METASTATIC
     Dosage: 20 MG/M[2]/ DAILY/ IV
     Route: 042
     Dates: start: 20030811, end: 20030818
  10. TOPROL-XL [Suspect]
     Indication: HYPERTENSION
     Dosage: 50 MG/ DAILY/ PO
     Route: 048
  11. PROTONIX [Suspect]
     Indication: HYPERTENSION
     Dosage: 40 MG/ DAILY/ PO
     Route: 048
  12. AMIODARONE HCL [Suspect]
     Dosage: 200 MG/ BID/ PO
     Route: 048
  13. PLACEBO (UNSPECIFIED) UNK [Suspect]
     Indication: COLORECTAL CANCER METASTATIC
     Dates: start: 20030811

REACTIONS (4)
  - ANGINA PECTORIS [None]
  - CONSTIPATION [None]
  - HAEMOGLOBIN DECREASED [None]
  - INTESTINAL OBSTRUCTION [None]
